FAERS Safety Report 4395842-5 (Version None)
Quarter: 2004Q3

REPORT INFORMATION
  Report Type: 
  Country: None (occurrence: None)
  Receive Date: 20040712
  Receipt Date: 20040630
  Transmission Date: 20050211
  Serious: Yes (Hospitalization, Disabling)
  Sender: FDA-Public Use
  Company Number: 2004CG01295

PATIENT
  Age: 72 Year
  Sex: Male

DRUGS (5)
  1. CRESTOR [Suspect]
     Dosage: 10 MG QD PO
     Route: 048
     Dates: start: 20040301
  2. SINTROM [Suspect]
     Dosage: 1 DF QD PO
     Route: 048
     Dates: start: 20040301
  3. SINTROM [Suspect]
     Dosage: 0.75 DF QD PO
     Route: 048
     Dates: end: 20040501
  4. MACROLIDE [Suspect]
     Indication: BRONCHITIS
     Dates: start: 20040501, end: 20040501
  5. SERECOR [Concomitant]

REACTIONS (9)
  - BLINDNESS [None]
  - BRONCHITIS [None]
  - DIARRHOEA [None]
  - DRUG INTERACTION [None]
  - HAEMATOMA [None]
  - HAEMORRHAGIC DIATHESIS [None]
  - INTERNATIONAL NORMALISED RATIO INCREASED [None]
  - RETINAL HAEMORRHAGE [None]
  - WEIGHT DECREASED [None]
